FAERS Safety Report 7885431-X (Version None)
Quarter: 2011Q4

REPORT INFORMATION
  Report Type: 
  Country: None (occurrence: None)
  Receive Date: 20111102
  Receipt Date: 20111025
  Transmission Date: 20120403
  Serious: Yes (Other)
  Sender: FDA-Public Use
  Company Number: US-BAXTER-2011BH034562

PATIENT

DRUGS (2)
  1. CYCLOPHOSPHAMIDE [Suspect]
     Indication: MATERNAL EXPOSURE DURING PREGNANCY
     Route: 064
  2. DOXORUBICIN HCL [Suspect]
     Indication: MATERNAL EXPOSURE DURING PREGNANCY
     Route: 064

REACTIONS (6)
  - MATERNAL EXPOSURE DURING PREGNANCY [None]
  - FOETAL GROWTH RESTRICTION [None]
  - FOETAL DISTRESS SYNDROME [None]
  - THROMBOCYTOPENIA [None]
  - PERIVENTRICULAR LEUKOMALACIA [None]
  - RASH [None]
